FAERS Safety Report 9219391 (Version 1)
Quarter: 2013Q2

REPORT INFORMATION
  Report Type: Spontaneous
  Country: US (occurrence: None)
  Receive Date: 20130405
  Receipt Date: 20130405
  Transmission Date: 20140414
  Serious: Yes (Other)
  Sender: FDA-Public Use
  Company Number: MC201300162

PATIENT
  Age: 35 Year
  Sex: Male

DRUGS (3)
  1. ANGIOMAX, ANGIOX (BIVALIRUDIN) INJECTION [Suspect]
     Indication: VENTRICULAR ASSIST DEVICE INSERTION
     Route: 042
  2. HEPARIN (HEPARIN SODIUM) [Concomitant]
  3. PLASMA, FRESH FROZEN [Concomitant]

REACTIONS (3)
  - Atrial thrombosis [None]
  - Pulmonary embolism [None]
  - Off label use [None]
